FAERS Safety Report 7074268-X (Version None)
Quarter: 2010Q4

REPORT INFORMATION
  Report Type: 
  Country: None (occurrence: None)
  Receive Date: 20101029
  Receipt Date: 20101018
  Transmission Date: 20110411
  Serious: Yes (Other)
  Sender: FDA-Public Use
  Company Number: US-JNJFOC-20100703135

PATIENT
  Sex: Male

DRUGS (10)
  1. REMICADE [Suspect]
     Indication: CROHN'S DISEASE
     Route: 042
  2. COLESTID [Concomitant]
     Indication: DIARRHOEA
  3. PROTONIX [Concomitant]
     Indication: GASTROOESOPHAGEAL REFLUX DISEASE
     Route: 048
  4. OMEPRAZOLE [Concomitant]
     Indication: GASTROOESOPHAGEAL REFLUX DISEASE
  5. WARFARIN [Concomitant]
  6. LOTREL [Concomitant]
  7. HOODIA [Concomitant]
  8. SULFASALAZINE [Concomitant]
  9. NEURONTIN [Concomitant]
  10. TRICOR [Concomitant]

REACTIONS (4)
  - BLADDER NECK OBSTRUCTION [None]
  - DRUG INEFFECTIVE [None]
  - ORGANIC ERECTILE DYSFUNCTION [None]
  - PROSTATE CANCER [None]
